FAERS Safety Report 7288795-3 (Version None)
Quarter: 2011Q1

REPORT INFORMATION
  Report Type: 
  Country: None (occurrence: None)
  Receive Date: 20110211
  Receipt Date: 20110207
  Transmission Date: 20110831
  Serious: Yes (Hospitalization)
  Sender: FDA-Public Use
  Company Number: DE-ABBOTT-11P-062-0703349-00

PATIENT
  Sex: Female

DRUGS (7)
  1. METHOTREXATE [Concomitant]
  2. HUMIRA [Suspect]
     Dates: start: 20080301
  3. METHOTREXATE [Concomitant]
  4. HUMIRA [Suspect]
     Dates: start: 20060701, end: 20080101
  5. HUMIRA [Suspect]
     Indication: RHEUMATOID ARTHRITIS
     Dates: start: 20040101, end: 20060101
  6. METHOTREXATE [Concomitant]
     Indication: PRODUCT USED FOR UNKNOWN INDICATION
  7. METHOTREXATE [Concomitant]

REACTIONS (3)
  - HYPOTONY OF EYE [None]
  - GLAUCOMA [None]
  - INTRAOCULAR PRESSURE DECREASED [None]
